FAERS Safety Report 9248981 (Version 1)
Quarter: 2013Q2

REPORT INFORMATION
  Report Type: Spontaneous
  Country: US (occurrence: None)
  Receive Date: 20130419
  Receipt Date: 20130419
  Transmission Date: 20140414
  Serious: No
  Sender: FDA-Public Use
  Company Number: None

PATIENT
  Age: 33 Year
  Sex: Female
  Weight: 94.8 kg

DRUGS (1)
  1. ADDERALL [Suspect]
     Indication: ATTENTION DEFICIT/HYPERACTIVITY DISORDER
     Route: 048
     Dates: start: 20130410, end: 20130418

REACTIONS (4)
  - Drug ineffective [None]
  - Product substitution issue [None]
  - Disturbance in attention [None]
  - Disturbance in attention [None]
